FAERS Safety Report 8118082-2 (Version None)
Quarter: 2012Q1

REPORT INFORMATION
  Report Type: 
  Country: None (occurrence: None)
  Receive Date: 20120207
  Receipt Date: 20120131
  Transmission Date: 20120608
  Serious: No
  Sender: FDA-Public Use
  Company Number: US-PFIZER INC-2012027855

PATIENT
  Age: 41 Year
  Sex: Male

DRUGS (7)
  1. OXYCONTIN [Concomitant]
     Dosage: UNK
  2. BACLOFEN [Concomitant]
     Dosage: UNK
  3. PERCOCET [Concomitant]
     Dosage: UNK
  4. ZANAFLEX [Concomitant]
     Dosage: UNK
  5. ACETYLSALICYLIC ACID [Concomitant]
     Dosage: UNK
  6. NEURONTIN [Suspect]
     Indication: NEURALGIA
     Dosage: UNK
  7. OXYCODONE [Concomitant]
     Dosage: UNK

REACTIONS (1)
  - WEIGHT DECREASED [None]
